FAERS Safety Report 7007601-5 (Version None)
Quarter: 2010Q3

REPORT INFORMATION
  Report Type: 
  Country: None (occurrence: None)
  Receive Date: 20100920
  Receipt Date: 20100908
  Transmission Date: 20110219
  Serious: Yes (Hospitalization, Disabling)
  Sender: FDA-Public Use
  Company Number: 1000016196

PATIENT
  Age: 84 Year
  Sex: Female

DRUGS (12)
  1. CITALOPRAM HYDROBROMIDE [Suspect]
     Dosage: 20 MG (20 MG, 1 IN 1 D)
  2. MEMANTINE [Suspect]
     Indication: DEMENTIA ALZHEIMER'S TYPE
     Dosage: 20 MG (20 MG, 1 IN 1 D)
     Dates: start: 20100219
  3. HALDOL [Suspect]
     Dosage: 10 GTT (10 GTT, 1 IN 1 D), ORAL
     Route: 048
  4. TRIMEPRAZINE TARTRATE [Suspect]
     Indication: SLEEP DISORDER
     Dosage: 40 GTT (40 GTT,1 IN 1 D), ORAL
     Route: 048
  5. ARICEPT [Suspect]
     Indication: DEMENTIA ALZHEIMER'S TYPE
     Dosage: 5 MG (5 MG,  1 IN 1 D) ,ORAL
     Route: 048
     Dates: end: 20100219
  6. MEPRONIZINE [Suspect]
     Dosage: 1 DF (1 DOSAGE FORMS, 1 IN 1 D), ORAL
     Route: 048
     Dates: end: 20100219
  7. DIAZEPAM [Suspect]
     Dosage: 10 MG (10 MG,1 IN 1 D)
  8. ATARAX [Suspect]
     Dosage: 25 MG (25 MG, 1 IN 1 D), ORAL
     Route: 048
     Dates: end: 20100219
  9. LEVOTHYROX (LEVOTHYROXINE SODIUM) [Concomitant]
  10. TARDYFERON [Concomitant]
  11. LEVEMIR [Concomitant]
  12. NOVOLOG [Concomitant]

REACTIONS (5)
  - CEREBRAL ATROPHY [None]
  - CEREBRAL INFARCTION [None]
  - FALL [None]
  - HYPOGLYCAEMIA [None]
  - URINARY TRACT INFECTION [None]
